FAERS Safety Report 8840052 (Version 1)
Quarter: 2012Q4

REPORT INFORMATION
  Report Type: 
  Country: US (occurrence: US)
  Receive Date: 20121015
  Receipt Date: 20121015
  Transmission Date: 20130627
  Serious: Yes (Hospitalization)
  Sender: FDA-Public Use
  Company Number: US-PFIZER INC-2012252226

PATIENT
  Age: 42 Year
  Sex: Male

DRUGS (7)
  1. SOLU-MEDROL [Suspect]
     Indication: PREMEDICATION
     Dosage: 125 mg, single
     Dates: start: 20120823, end: 20120823
  2. KYRSTEXXA [Suspect]
     Indication: GOUT
     Dosage: 8 mg, x1 every 2 weeks
     Route: 042
     Dates: start: 20120823, end: 20120823
  3. BENADRYL [Concomitant]
     Indication: PREMEDICATION
     Dosage: UNK
     Dates: start: 20120822, end: 20120905
  4. TYLENOL [Concomitant]
     Indication: PREMEDICATION
     Dosage: 650 mg, UNK
     Dates: start: 20120823, end: 20120906
  5. INSULIN [Concomitant]
     Dosage: UNK
     Dates: start: 201208
  6. ATENOLOL [Concomitant]
     Dosage: UNK
  7. ULORIC [Concomitant]
     Dosage: UNK
     Dates: end: 2012

REACTIONS (1)
  - Blood glucose increased [Unknown]
